FAERS Safety Report 23214017 (Version 1)
Quarter: 2023Q4

REPORT INFORMATION
  Report Type: Spontaneous
  Country: US (occurrence: None)
  Receive Date: 20231121
  Receipt Date: 20231121
  Transmission Date: 20240109
  Serious: Yes (Hospitalization)
  Sender: FDA-Public Use
  Company Number: None

PATIENT
  Age: 76 Year
  Sex: Male
  Weight: 64 kg

DRUGS (2)
  1. ITRACONAZOLE ORAL [Suspect]
     Active Substance: ITRACONAZOLE
     Dates: start: 20230613, end: 20230621
  2. AMPHOTERICIN B [Suspect]
     Active Substance: AMPHOTERICIN B

REACTIONS (4)
  - Cardiac failure congestive [None]
  - Pulmonary oedema [None]
  - Pleural effusion [None]
  - Acute respiratory failure [None]

NARRATIVE: CASE EVENT DATE: 20230621
